FAERS Safety Report 8986341 (Version 1)
Quarter: 2012Q4

REPORT INFORMATION
  Report Type: Report from Study
  Country: RS (occurrence: RS)
  Receive Date: 20121226
  Receipt Date: 20121226
  Transmission Date: 20130627
  Serious: Yes (Death)
  Sender: FDA-Public Use
  Company Number: RS-ROCHE-1173908

PATIENT
  Sex: Male

DRUGS (5)
  1. RITUXIMAB [Suspect]
     Indication: B-CELL LYMPHOMA
     Route: 042
     Dates: start: 20080728, end: 20080819
  2. ENDOXAN [Suspect]
     Indication: B-CELL LYMPHOMA
     Route: 042
     Dates: start: 20080728, end: 20080819
  3. ADRIABLASTINA [Suspect]
     Indication: B-CELL LYMPHOMA
     Route: 042
     Dates: start: 20080728, end: 20080819
  4. ONCOVIN [Suspect]
     Indication: B-CELL LYMPHOMA
     Route: 042
  5. PRONISON [Suspect]
     Indication: B-CELL LYMPHOMA
     Route: 048

REACTIONS (1)
  - Cerebrovascular accident [Fatal]
